FAERS Safety Report 8465629-2 (Version None)
Quarter: 2012Q2

REPORT INFORMATION
  Report Type: 
  Country: None (occurrence: None)
  Receive Date: 20120626
  Receipt Date: 20120618
  Transmission Date: 20120825
  Serious: Yes (Other)
  Sender: FDA-Public Use
  Company Number: US-BAYER-2012-007459

PATIENT
  Age: 31 Year
  Sex: Female
  Weight: 86 kg

DRUGS (8)
  1. IBUPROFEN [Concomitant]
     Indication: DYSMENORRHOEA
     Dosage: UNK
     Dates: start: 19980101
  2. YAZ [Suspect]
     Dosage: UNK
     Route: 048
     Dates: start: 20050101, end: 20091201
  3. ZEGERID [Concomitant]
     Dosage: UNK
     Dates: start: 20091204
  4. YAZ [Suspect]
     Indication: DYSMENORRHOEA
     Route: 048
     Dates: start: 20040101, end: 20091201
  5. PPI (INTERPRETED AS PROTON PUMP INHIBITOR) [Concomitant]
  6. PRILOSEC [Concomitant]
     Dosage: 1 TAB DAILY
     Route: 048
     Dates: start: 20091204
  7. YASMIN [Suspect]
     Dosage: UNK
     Dates: start: 20040101, end: 20091201
  8. SEASONIQUE [Concomitant]

REACTIONS (3)
  - CHOLECYSTECTOMY [None]
  - INJURY [None]
  - BILIARY DYSKINESIA [None]
